FAERS Safety Report 21307140 (Version 1)
Quarter: 2022Q3

REPORT INFORMATION
  Report Type: Other
  Country: US (occurrence: None)
  Receive Date: 20220908
  Receipt Date: 20220908
  Transmission Date: 20221027
  Serious: Yes (Hospitalization, Other)
  Sender: FDA-Public Use
  Company Number: US-ROCHE-2461787

PATIENT
  Age: 65 Year
  Sex: Female
  Weight: 99.880 kg

DRUGS (13)
  1. OCREVUS [Suspect]
     Active Substance: OCRELIZUMAB
     Indication: Relapsing-remitting multiple sclerosis
     Dosage: ONGOING: UNKNOWN
     Route: 042
     Dates: start: 20191024
  2. OCREVUS [Suspect]
     Active Substance: OCRELIZUMAB
     Route: 042
     Dates: start: 20191106
  3. OCREVUS [Suspect]
     Active Substance: OCRELIZUMAB
     Dosage: (STRENGTH: 30 MG/ML), EVERY 6 MONTHS 600 MG IN 500 ML INFUSION RATE AND DURATION, 200 ML PER HOUR DU
     Route: 042
     Dates: start: 2019
  4. TYLENOL WITH CODEINE [Concomitant]
     Active Substance: ACETAMINOPHEN\CODEINE PHOSPHATE
     Indication: Pain
     Dosage: CAN TAKE THREE TIMES A DAY AS NEEDED PILL
     Route: 048
  5. TRAZODONE [Concomitant]
     Active Substance: TRAZODONE HYDROCHLORIDE
     Indication: Depression
     Route: 048
  6. TRAZODONE [Concomitant]
     Active Substance: TRAZODONE HYDROCHLORIDE
     Indication: Insomnia
  7. DULOXETINE [Concomitant]
     Active Substance: DULOXETINE
     Indication: Anxiety
     Route: 048
  8. TYLENOL WITH CODEINE [Concomitant]
     Active Substance: ACETAMINOPHEN\CODEINE PHOSPHATE
  9. AMANTADINE [Concomitant]
     Active Substance: AMANTADINE
  10. TIZANIDINE [Concomitant]
     Active Substance: TIZANIDINE
  11. GABAPENTIN [Concomitant]
     Active Substance: GABAPENTIN
  12. MELOXICAM [Concomitant]
     Active Substance: MELOXICAM
  13. MODERNA COVID-19 VACCINE [Concomitant]
     Active Substance: ELASOMERAN

REACTIONS (8)
  - Diarrhoea [Recovered/Resolved]
  - COVID-19 [Recovered/Resolved]
  - Asthenia [Not Recovered/Not Resolved]
  - Hypoaesthesia [Not Recovered/Not Resolved]
  - Peripheral swelling [Recovered/Resolved]
  - Fatigue [Not Recovered/Not Resolved]
  - General physical health deterioration [Not Recovered/Not Resolved]
  - Fall [Unknown]

NARRATIVE: CASE EVENT DATE: 20191025
